FAERS Safety Report 7388166-5 (Version None)
Quarter: 2011Q2

REPORT INFORMATION
  Report Type: 
  Country: None (occurrence: None)
  Receive Date: 20110401
  Receipt Date: 20110322
  Transmission Date: 20111010
  Serious: Yes (Hospitalization)
  Sender: FDA-Public Use
  Company Number: FR-AMGEN-FRASP2011008428

PATIENT
  Age: 27 Year
  Sex: Male
  Weight: 89 kg

DRUGS (4)
  1. PANTOPRAZOLE [Concomitant]
     Dosage: 20 MG, 2X/DAY
     Route: 048
     Dates: start: 20090101
  2. ACETAMINOPHEN AND TRAMADOL HCL [Concomitant]
     Dosage: 37.5 MG, 2X/DAY
     Route: 048
     Dates: start: 20090101
  3. BREXIN                             /00500404/ [Concomitant]
     Dosage: 20 MG, 2X/DAY
     Route: 048
     Dates: start: 20090101
  4. ENBREL [Suspect]
     Indication: PSORIATIC ARTHROPATHY
     Dosage: 50 MG, WEEKLY
     Route: 058
     Dates: start: 20090402

REACTIONS (1)
  - CALCULUS URINARY [None]
